FAERS Safety Report 9034174 (Version 2)
Quarter: 2013Q1

REPORT INFORMATION
  Report Type: Spontaneous
  Country: US (occurrence: None)
  Receive Date: 20130114
  Receipt Date: 20130304
  Transmission Date: 20140127
  Serious: Yes (Hospitalization)
  Sender: FDA-Public Use
  Company Number: ACO_33665_2013

PATIENT
  Age: 56 Year
  Sex: Female

DRUGS (17)
  1. AMPYRA [Suspect]
     Indication: GAIT DISTURBANCE
     Dates: start: 201007, end: 20120102
  2. ACIPHEX (RABEPRAZOLE SODIUM) [Concomitant]
  3. ADVAIR (FLUTICASONE PROPIONATE, SALMETEROL XINAFOATE) [Concomitant]
  4. ALBUTEROL (SALBUTAMOL SULFATE) [Concomitant]
  5. ALPRAZOLAN (ALPRAZOLAM) [Concomitant]
  6. AMANTADINE (AMANTADINE) [Concomitant]
  7. BACLOFEN (BACLOFEN) [Concomitant]
  8. DOXAZOSIN MESYLATE (DOXAZOSIN MESILATE) [Concomitant]
  9. METFORMIN (METFORMIN) [Concomitant]
  10. NEFAZODONE (NEFAZODONE) [Concomitant]
  11. PROAIR (SALBUTAMOL SULFATE) [Concomitant]
  12. SINGULAIR (MONTELUKAST SODIUM) [Concomitant]
  13. TYSABRI (NATALIZUMAB) [Concomitant]
  14. VENLAFAXINE HCL (VENLAFAXINE HYDROCHLORIDE) [Concomitant]
  15. VESICARE (SOLIFENACIN SUCCINATE) [Concomitant]
  16. VITAMIN D3 (COLECALCIFEROL) [Concomitant]
  17. VYTORIN (EZETIMIBE, SIMVASTATIN) [Concomitant]

REACTIONS (8)
  - Flatulence [None]
  - Nausea [None]
  - Dyspepsia [None]
  - Constipation [None]
  - Volvulus [None]
  - Gallbladder disorder [None]
  - Adhesion [None]
  - Inappropriate schedule of drug administration [None]
